FAERS Safety Report 15172448 (Version 1)
Quarter: 2018Q3

REPORT INFORMATION
  Report Type: Report from Study
  Country: None (occurrence: JP)
  Receive Date: 20180720
  Receipt Date: 20180720
  Transmission Date: 20181010
  Serious: Yes (Other)
  Sender: FDA-Public Use
  Company Number: JP-INGENUS PHARMACEUTICALS NJ, LLC-ING201807-000707

PATIENT
  Age: 72 Year
  Sex: Male

DRUGS (2)
  1. THIENOPYRIDINE [Suspect]
     Active Substance: UNSPECIFIED INGREDIENT
     Indication: ISCHAEMIC STROKE
  2. CARISOPRODOL, ASPIRIN AND CODEINE PHOSPHATE [Suspect]
     Active Substance: ASPIRIN\CARISOPRODOL\CODEINE PHOSPHATE
     Indication: ISCHAEMIC STROKE

REACTIONS (1)
  - Haemothorax [Unknown]
